FAERS Safety Report 13767887 (Version 1)
Quarter: 2017Q3

REPORT INFORMATION
  Report Type: Other
  Country: US (occurrence: US)
  Receive Date: 20170719
  Receipt Date: 20170719
  Transmission Date: 20171127
  Serious: Yes (Life-Threatening, Other)
  Sender: FDA-Public Use
  Company Number: US-OSMOTICA_PHARMACEUTICAL_US_LLC-POI0573201700041

PATIENT
  Age: 32 Year
  Sex: Male
  Weight: 74 kg

DRUGS (15)
  1. SUCCINYLCHOLINE [Interacting]
     Active Substance: SUCCINYLCHOLINE
  2. ROCURONIUM [Concomitant]
     Active Substance: ROCURONIUM BROMIDE
  3. METHOHEXITAL [Concomitant]
     Active Substance: METHOHEXITAL
  4. GLYCOPYRROLATE. [Concomitant]
     Active Substance: GLYCOPYRROLATE
  5. MIRTAZAPINE. [Concomitant]
     Active Substance: MIRTAZAPINE
  6. SUCCINYLCHOLINE [Interacting]
     Active Substance: SUCCINYLCHOLINE
     Indication: NEUROMUSCULAR BLOCKING THERAPY
  7. DIVIGEL [Suspect]
     Active Substance: ESTRADIOL
     Indication: TRANSGENDER HORMONAL THERAPY
     Route: 062
  8. ROCURONIUM [Concomitant]
     Active Substance: ROCURONIUM BROMIDE
     Indication: NEUROMUSCULAR BLOCKING THERAPY
  9. BUPROPION. [Concomitant]
     Active Substance: BUPROPION
  10. TRAZODONE [Concomitant]
     Active Substance: TRAZODONE HYDROCHLORIDE
  11. DIVIGEL [Interacting]
     Active Substance: ESTRADIOL
     Route: 062
  12. METHOHEXITAL [Concomitant]
     Active Substance: METHOHEXITAL
     Indication: ANAESTHESIA
  13. GLYCOPYRROLATE. [Concomitant]
     Active Substance: GLYCOPYRROLATE
     Indication: NEUROMUSCULAR BLOCKING THERAPY
  14. DEXTROAMPHET SACCHARAT, AMPHET ASPARTATE, DEXTROAMPHET SULFATE AND AMPHET SULFAT [Concomitant]
     Active Substance: AMPHETAMINE ASPARTATE\AMPHETAMINE SULFATE\DEXTROAMPHETAMINE SACCHARATE\DEXTROAMPHETAMINE SULFATE
  15. SPIRONOLACTONE. [Concomitant]
     Active Substance: SPIRONOLACTONE

REACTIONS (4)
  - Hypotonia [Recovered/Resolved]
  - Pseudocholinesterase deficiency [Unknown]
  - Drug interaction [Unknown]
  - Apnoea [Recovered/Resolved]

NARRATIVE: CASE EVENT DATE: 201706
